FAERS Safety Report 17956623 (Version 2)
Quarter: 2021Q2

REPORT INFORMATION
  Report Type: Spontaneous
  Country: US (occurrence: US)
  Receive Date: 20200629
  Receipt Date: 20210629
  Transmission Date: 20210717
  Serious: Yes (Other)
  Sender: FDA-Public Use
  Company Number: US-TEVA-2020-US-1793950

PATIENT
  Age: 74 Year
  Sex: Female
  Weight: 88.98 kg

DRUGS (4)
  1. LYRICA [Concomitant]
     Active Substance: PREGABALIN
     Route: 048
  2. CYCLOBENZAPRINE. [Suspect]
     Active Substance: CYCLOBENZAPRINE
     Indication: MUSCLE SPASMS
     Dosage: 5 MILLIGRAM DAILY; DOSE: TAKE 5 MG BY MOUTH DAILY AS NEEDED FOR
     Route: 065
  3. TOLMETIN [Suspect]
     Active Substance: TOLMETIN
     Route: 065
  4. LYRICA [Concomitant]
     Active Substance: PREGABALIN
     Route: 065
     Dates: start: 20200217

REACTIONS (4)
  - Arthritis [Unknown]
  - Swelling [Unknown]
  - Drug hypersensitivity [Unknown]
  - Renal failure [Unknown]
